FAERS Safety Report 17629671 (Version 1)
Quarter: 2020Q2

REPORT INFORMATION
  Report Type: Spontaneous
  Country: AU (occurrence: AU)
  Receive Date: 20200406
  Receipt Date: 20200406
  Transmission Date: 20200713
  Serious: Yes (Life-Threatening, Other)
  Sender: FDA-Public Use
  Company Number: AU-MYLANLABS-2020M1033822

PATIENT
  Sex: Female

DRUGS (6)
  1. EPIPEN [Suspect]
     Active Substance: EPINEPHRINE
     Dosage: UNK
  2. EPIPEN [Suspect]
     Active Substance: EPINEPHRINE
     Dosage: UNK
  3. EPIPEN [Suspect]
     Active Substance: EPINEPHRINE
     Dosage: UNK
  4. EPIPEN [Suspect]
     Active Substance: EPINEPHRINE
     Dosage: UNK
  5. EPIPEN [Suspect]
     Active Substance: EPINEPHRINE
     Indication: ANAPHYLACTIC REACTION
     Dosage: UNK
  6. EPIPEN [Suspect]
     Active Substance: EPINEPHRINE
     Dosage: UNK

REACTIONS (5)
  - Injection site pain [Unknown]
  - Device failure [Unknown]
  - Drug ineffective [Unknown]
  - Injection site bruising [Unknown]
  - Expired product administered [Unknown]
